FAERS Safety Report 11813447 (Version 1)
Quarter: 2015Q4

REPORT INFORMATION
  Report Type: Spontaneous
  Country: US (occurrence: None)
  Receive Date: 20151208
  Receipt Date: 20151208
  Transmission Date: 20160305
  Serious: Yes (Hospitalization)
  Sender: FDA-Public Use
  Company Number: None

PATIENT
  Age: 88 Year
  Sex: Female
  Weight: 69.9 kg

DRUGS (6)
  1. PLAVIX [Suspect]
     Active Substance: CLOPIDOGREL BISULFATE
     Indication: CEREBROVASCULAR ACCIDENT
     Route: 048
  2. ECOTRIN [Suspect]
     Active Substance: ASPIRIN
     Indication: CEREBROVASCULAR ACCIDENT
     Route: 048
  3. ECOTRIN [Suspect]
     Active Substance: ASPIRIN
     Indication: AORTIC ANEURYSM
     Route: 048
  4. PLAVIX [Suspect]
     Active Substance: CLOPIDOGREL BISULFATE
     Indication: AORTIC ANEURYSM
     Route: 048
  5. PRINIVIL [Concomitant]
     Active Substance: LISINOPRIL
  6. APAP [Concomitant]
     Active Substance: ACETAMINOPHEN

REACTIONS (7)
  - Ataxia [None]
  - Delusion [None]
  - Confusional state [None]
  - Headache [None]
  - Blood pressure abnormal [None]
  - Haemorrhage intracranial [None]
  - Hallucination [None]

NARRATIVE: CASE EVENT DATE: 20150330
